FAERS Safety Report 14416887 (Version 8)
Quarter: 2019Q2

REPORT INFORMATION
  Report Type: Spontaneous
  Country: US (occurrence: US)
  Receive Date: 20180122
  Receipt Date: 20190611
  Transmission Date: 20190711
  Serious: Yes (Hospitalization, Other)
  Sender: FDA-Public Use
  Company Number: US-PFIZER INC-2016494561

PATIENT
  Age: 82 Year
  Sex: Female
  Weight: 74 kg

DRUGS (30)
  1. LYRICA [Suspect]
     Active Substance: PREGABALIN
     Indication: NERVE INJURY
     Dosage: 50 MG, 1X/DAY (QHS 90DAYS)
     Route: 048
  2. LEVOTHYROXINE. [Concomitant]
     Active Substance: LEVOTHYROXINE
     Dosage: 25 UG, 1X/DAY
     Route: 048
  3. LYRICA [Suspect]
     Active Substance: PREGABALIN
     Indication: POST HERPETIC NEURALGIA
     Dosage: 100 MG, UNK
  4. LYRICA [Suspect]
     Active Substance: PREGABALIN
     Dosage: 50 MG, 2X/DAY (50MG OF LYRICA IN THE MORNING AND 50MG AT NIGHT TOO)
  5. LOPID [Concomitant]
     Active Substance: GEMFIBROZIL
     Dosage: 600 MG, 2X/DAY
     Route: 048
     Dates: start: 20161115
  6. GEMFIBROZIL. [Concomitant]
     Active Substance: GEMFIBROZIL
     Dosage: 25 MG, 1X/DAY
     Route: 048
  7. TRICOR [Concomitant]
     Active Substance: FENOFIBRATE
     Dosage: 145 MG, 1X/DAY
     Route: 048
  8. PNEUMOVAX 23 [Concomitant]
     Active Substance: PNEUMOCOCCAL VACCINE, POLYVALENT 23
     Dosage: 1 ML, SINGLE
     Route: 030
     Dates: start: 20160609
  9. LEVOTHYROXINE. [Concomitant]
     Active Substance: LEVOTHYROXINE
     Dosage: UNK
     Dates: start: 2008
  10. ANUSOL-HC [Concomitant]
     Dosage: 25 MG, AS NEEDED (1 SUPP(S) RECTALLY 2 TIMES A DAY)
     Route: 054
     Dates: start: 20160510
  11. PROCTOSOL-HC [Concomitant]
     Active Substance: HYDROCORTISONE
     Dosage: 2.5 %, AS NEEDED (1 APP APPLIED TOPICALLY TID)
     Route: 061
     Dates: start: 20160215
  12. BIOFLEXOR [Concomitant]
     Active Substance: MENTHOL
     Dosage: UNK (AS DIRECTED TOPICALLY)
     Route: 061
     Dates: start: 20150127
  13. AMIODARONE HCL [Concomitant]
     Active Substance: AMIODARONE HYDROCHLORIDE
     Indication: HEART RATE ABNORMAL
     Dosage: 100 MG, 1X/DAY
     Route: 048
     Dates: start: 201801
  14. LOSARTAN. [Concomitant]
     Active Substance: LOSARTAN
     Indication: HYPERTENSION
     Dosage: 25 MG, 1X/DAY
     Route: 048
  15. METOPROLOL SUCCINATE. [Concomitant]
     Active Substance: METOPROLOL SUCCINATE
     Indication: HYPERTENSION
     Dosage: 25 MG, 1X/DAY
     Route: 048
     Dates: start: 201801
  16. GEMFIBROZIL. [Concomitant]
     Active Substance: GEMFIBROZIL
     Indication: BLOOD CHOLESTEROL ABNORMAL
     Dosage: 300 MG, 1X/DAY
     Route: 048
  17. LEVOTHYROXINE SODIUM. [Concomitant]
     Active Substance: LEVOTHYROXINE SODIUM
     Indication: THYROID DISORDER
     Dosage: 50 MG, 1X/DAY (TAKING FOR A LONG TIME)
     Route: 048
  18. LYRICA [Suspect]
     Active Substance: PREGABALIN
     Indication: HYPOAESTHESIA
     Dosage: 50 MG, 1X/DAY
     Dates: start: 2014
  19. LYRICA [Suspect]
     Active Substance: PREGABALIN
     Indication: NEUROPATHY PERIPHERAL
     Dosage: 50 MG, 1X/DAY (AT NIGHTLY, EVERY BEDTIME)
     Route: 048
  20. FLUTICASONE. [Concomitant]
     Active Substance: FLUTICASONE
     Dosage: UNK, 1X/DAY (2 SPRAY(S) INTRANASALLY)
     Route: 045
  21. FLUCONAZOLE. [Concomitant]
     Active Substance: FLUCONAZOLE
     Dosage: 150 MG, WEEKLY
     Route: 048
     Dates: start: 20160921
  22. VOLTAREN [Concomitant]
     Active Substance: DICLOFENAC SODIUM
     Dosage: 2 G, AS NEEDED (4 TIMES A DAY)
     Route: 061
  23. LYRICA [Suspect]
     Active Substance: PREGABALIN
     Indication: MONONEUROPATHY
     Dosage: 50 MG, 1X/DAY (CAPSULE AT NIGHT)
     Route: 048
  24. LYRICA [Suspect]
     Active Substance: PREGABALIN
     Dosage: 150 MG, 1X/DAY (2 CAPS QHS)
     Route: 048
  25. LYRICA [Suspect]
     Active Substance: PREGABALIN
     Dosage: 50 MG, 1X/DAY (ONCE DAILY AT NIGHT)
     Route: 048
  26. MELOXICAM. [Concomitant]
     Active Substance: MELOXICAM
     Dosage: 7.5 MG, 1X/DAY
     Route: 048
  27. ZOSTAVAX [Concomitant]
     Active Substance: VARICELLA-ZOSTER VIRUS STRAIN OKA/MERCK LIVE ANTIGEN
     Dosage: 1 ML, SINGLE
     Route: 058
     Dates: start: 20160609
  28. AMIODARONE HCL [Concomitant]
     Active Substance: AMIODARONE HYDROCHLORIDE
     Dosage: UNK
     Dates: start: 201901
  29. XARELTO [Concomitant]
     Active Substance: RIVAROXABAN
     Indication: ANTICOAGULANT THERAPY
     Dosage: 20 MG, 1X/DAY
     Route: 048
     Dates: start: 201801
  30. XARELTO [Concomitant]
     Active Substance: RIVAROXABAN
     Dosage: UNK
     Dates: start: 201901

REACTIONS (18)
  - Bronchitis [Unknown]
  - Arrhythmia [Unknown]
  - Nausea [Unknown]
  - Herpes zoster [Recovering/Resolving]
  - Expired product administered [Unknown]
  - Memory impairment [Unknown]
  - Rash [Recovering/Resolving]
  - Drug ineffective [Not Recovered/Not Resolved]
  - Product use issue [Unknown]
  - Malaise [Recovering/Resolving]
  - Vomiting [Recovering/Resolving]
  - Dizziness [Recovering/Resolving]
  - Dehydration [Not Recovered/Not Resolved]
  - Pain [Recovering/Resolving]
  - Off label use [Unknown]
  - Cough [Unknown]
  - Weight decreased [Unknown]
  - Musculoskeletal stiffness [Unknown]

NARRATIVE: CASE EVENT DATE: 201801
